FAERS Safety Report 6458493-4 (Version None)
Quarter: 2009Q4

REPORT INFORMATION
  Report Type: 
  Country: None (occurrence: None)
  Receive Date: 20091126
  Receipt Date: 20091118
  Transmission Date: 20100525
  Serious: Yes (Hospitalization)
  Sender: FDA-Public Use
  Company Number: US-BIOGENIDEC-2008BI016666

PATIENT
  Age: 43 Year
  Sex: Female

DRUGS (3)
  1. AVONEX [Suspect]
     Indication: MULTIPLE SCLEROSIS
     Route: 030
     Dates: start: 20050101, end: 20080922
  2. AVONEX [Suspect]
     Route: 030
     Dates: start: 20000101, end: 20050101
  3. AVONEX [Suspect]
     Route: 030
     Dates: start: 19981010

REACTIONS (6)
  - ANKLE FRACTURE [None]
  - FEAR [None]
  - HEAD INJURY [None]
  - JOINT SPRAIN [None]
  - LOWER LIMB FRACTURE [None]
  - ROAD TRAFFIC ACCIDENT [None]
